FAERS Safety Report 9547967 (Version 2)
Quarter: 2013Q3

REPORT INFORMATION
  Report Type: Spontaneous
  Country: US (occurrence: US)
  Receive Date: 20130924
  Receipt Date: 20130924
  Transmission Date: 20140515
  Serious: No
  Sender: FDA-Public Use
  Company Number: US-009507513-2012SP036033

PATIENT
  Sex: Female

DRUGS (2)
  1. IMPLANON [Suspect]
     Indication: CONTRACEPTION
     Dosage: UNK
  2. IMPLANON [Suspect]
     Dosage: UNK
     Dates: start: 20120109, end: 20120621

REACTIONS (1)
  - Unintended pregnancy [Unknown]
